FAERS Safety Report 12755617 (Version 1)
Quarter: 2016Q3

REPORT INFORMATION
  Report Type: Report from Study
  Country: CA (occurrence: CA)
  Receive Date: 20160916
  Receipt Date: 20160916
  Transmission Date: 20161109
  Serious: Yes (Hospitalization, Other)
  Sender: FDA-Public Use
  Company Number: CA-ABBVIE-16K-028-1557776-00

PATIENT
  Age: 40 Year
  Sex: Male

DRUGS (3)
  1. PREDNISONE. [Concomitant]
     Active Substance: PREDNISONE
     Indication: PRODUCT USED FOR UNKNOWN INDICATION
     Dates: end: 20151214
  2. HUMIRA [Suspect]
     Active Substance: ADALIMUMAB
     Indication: COLITIS ULCERATIVE
     Route: 058
     Dates: start: 20151031
  3. HUMIRA [Suspect]
     Active Substance: ADALIMUMAB
     Route: 058
     Dates: end: 201604

REACTIONS (19)
  - Haematochezia [Recovered/Resolved]
  - Colitis [Unknown]
  - Gastroenteritis viral [Unknown]
  - Diarrhoea [Not Recovered/Not Resolved]
  - Haematochezia [Recovered/Resolved]
  - Pain [Not Recovered/Not Resolved]
  - Laparoscopy abnormal [Unknown]
  - Clostridium difficile colitis [Recovered/Resolved]
  - Weight decreased [Unknown]
  - Vomiting [Recovered/Resolved]
  - Drug ineffective [Not Recovered/Not Resolved]
  - Postoperative fever [Recovered/Resolved]
  - Gastrointestinal inflammation [Unknown]
  - Disease progression [Unknown]
  - Abdominal pain [Recovered/Resolved]
  - C-reactive protein increased [Unknown]
  - Malaise [Not Recovered/Not Resolved]
  - Tachycardia [Unknown]
  - Platelet count increased [Unknown]

NARRATIVE: CASE EVENT DATE: 201512
